FAERS Safety Report 7332735-5 (Version None)
Quarter: 2011Q1

REPORT INFORMATION
  Report Type: 
  Country: None (occurrence: None)
  Receive Date: 20110304
  Receipt Date: 20100802
  Transmission Date: 20110831
  Serious: Yes (Other)
  Sender: FDA-Public Use
  Company Number: US-WATSON-2010-10412

PATIENT

DRUGS (2)
  1. REGLAN [Suspect]
     Dosage: UNK
     Route: 048
     Dates: start: 20070201, end: 20070801
  2. METOCLOPRAMIDE HYDROCHLORIDE [Suspect]
     Dosage: UNK
     Route: 048
     Dates: start: 20070201, end: 20070801

REACTIONS (3)
  - INCORRECT DRUG ADMINISTRATION DURATION [None]
  - RESTLESS LEGS SYNDROME [None]
  - TARDIVE DYSKINESIA [None]
